FAERS Safety Report 22076672 (Version 2)
Quarter: 2023Q2

REPORT INFORMATION
  Report Type: Report from Study
  Country: AR (occurrence: AR)
  Receive Date: 20230309
  Receipt Date: 20230416
  Transmission Date: 20230721
  Serious: Yes (Other)
  Sender: FDA-Public Use
  Company Number: AR-002147023-NVSC2023AR050438

PATIENT
  Sex: Male

DRUGS (4)
  1. EXFORGE [Suspect]
     Active Substance: AMLODIPINE BESYLATE\VALSARTAN
     Indication: Left ventricular hypertrophy
     Dosage: 1 DOSAGE FORM, QD (APPROXIMATELY 20 YEARS AGO) (5 X 28)
     Route: 048
  2. EXFORGE [Suspect]
     Active Substance: AMLODIPINE BESYLATE\VALSARTAN
     Indication: Cardiomegaly
  3. EXFORGE [Suspect]
     Active Substance: AMLODIPINE BESYLATE\VALSARTAN
     Indication: Hypertrophic cardiomyopathy
  4. EXFORGE [Suspect]
     Active Substance: AMLODIPINE BESYLATE\VALSARTAN
     Indication: Hypertension

REACTIONS (12)
  - Rheumatoid arthritis [Unknown]
  - Cardiac failure [Unknown]
  - Dyspnoea [Unknown]
  - Tachycardia [Unknown]
  - Decreased immune responsiveness [Unknown]
  - Pain [Unknown]
  - Vision blurred [Unknown]
  - Asthenia [Unknown]
  - Fibromyalgia [Unknown]
  - Sciatic nerve palsy [Unknown]
  - Hypoaesthesia [Unknown]
  - Arthritis [Unknown]

NARRATIVE: CASE EVENT DATE: 20170101
